FAERS Safety Report 7345354-1 (Version None)
Quarter: 2011Q1

REPORT INFORMATION
  Report Type: 
  Country: None (occurrence: None)
  Receive Date: 20110310
  Receipt Date: 20110308
  Transmission Date: 20110831
  Serious: Yes (Other)
  Sender: FDA-Public Use
  Company Number: DE-PFIZER INC-2010135170

PATIENT
  Age: 74 Year
  Sex: Female
  Weight: 66 kg

DRUGS (8)
  1. RITUXIMAB [Concomitant]
     Dosage: UNK
  2. LYRICA [Suspect]
     Dosage: 100 MG, 1X/DAY
     Route: 048
     Dates: start: 20101030, end: 20101122
  3. LYRICA [Suspect]
     Dosage: FADING OUT BY WEEKLY DOSE DECREASE BY 25 MG/WEEK
     Route: 048
     Dates: start: 20101123
  4. SULFAMETHOXAZOLE AND TRIMETHOPRIM [Concomitant]
     Indication: INFECTION PROPHYLAXIS
     Dosage: THRICE WEEKLY
  5. LYRICA [Suspect]
     Indication: BACK PAIN
     Dosage: 50 MG, 1X/DAY
     Route: 048
     Dates: start: 20101002, end: 20101015
  6. ASPIRIN [Concomitant]
     Dosage: 100 MG, 1X/DAY
  7. LYRICA [Suspect]
     Indication: POLYNEUROPATHY
     Dosage: 25 MG, 1X/DAY
     Route: 048
     Dates: start: 20100918, end: 20101001
  8. LYRICA [Suspect]
     Dosage: 75 MG, 1X/DAY
     Route: 048
     Dates: start: 20101016, end: 20101029

REACTIONS (7)
  - VITREOUS FLOATERS [None]
  - CATARACT [None]
  - HORDEOLUM [None]
  - VISUAL IMPAIRMENT [None]
  - DIZZINESS [None]
  - VISION BLURRED [None]
  - SOMNOLENCE [None]
